FAERS Safety Report 23530722 (Version 1)
Quarter: 2024Q1

REPORT INFORMATION
  Report Type: Spontaneous
  Country: US (occurrence: US)
  Receive Date: 20240216
  Receipt Date: 20240216
  Transmission Date: 20240409
  Serious: Yes (Other)
  Sender: FDA-Public Use
  Company Number: US-ROCHE-3508437

PATIENT
  Age: 54 Year
  Sex: Male

DRUGS (1)
  1. TARCEVA [Suspect]
     Active Substance: ERLOTINIB HYDROCHLORIDE
     Indication: Lung neoplasm malignant
     Dosage: UNK UNK, UNKNOWN FREQ.
     Route: 048
     Dates: start: 2020

REACTIONS (2)
  - Lung neoplasm malignant [Not Recovered/Not Resolved]
  - COVID-19 [Recovered/Resolved]
